FAERS Safety Report 4413236-0 (Version None)
Quarter: 2004Q3

REPORT INFORMATION
  Report Type: 
  Country: None (occurrence: None)
  Receive Date: 20040802
  Receipt Date: 20040723
  Transmission Date: 20050211
  Serious: Yes (Hospitalization)
  Sender: FDA-Public Use
  Company Number: CH-BRISTOL-MYERS SQUIBB COMPANY-12654349

PATIENT
  Age: 88 Year
  Sex: Female

DRUGS (2)
  1. CARBIDOPA + LEVODOPA CR [Suspect]
     Indication: PARKINSONISM
     Dosage: 1.5 TABLET
     Route: 048
  2. RISPERIDONE [Interacting]
     Route: 048
     Dates: end: 20040621

REACTIONS (2)
  - DRUG INTERACTION [None]
  - EPILEPSY [None]
